FAERS Safety Report 12517920 (Version 1)
Quarter: 2016Q2

REPORT INFORMATION
  Report Type: Other
  Country: US (occurrence: US)
  Receive Date: 20160630
  Receipt Date: 20160630
  Transmission Date: 20160815
  Serious: Yes (Hospitalization, Other)
  Sender: FDA-Public Use
  Company Number: US-VELOXIS PHARMACEUTICALS-1054429

PATIENT
  Age: 17 Year
  Sex: Female

DRUGS (4)
  1. HYDROCHLOROTHIAZIDE. [Concomitant]
     Active Substance: HYDROCHLOROTHIAZIDE
  2. BUPROPION HYDROCHLORIDE. [Concomitant]
     Active Substance: BUPROPION HYDROCHLORIDE
  3. ENVARSUS XR [Suspect]
     Active Substance: TACROLIMUS
     Indication: NEPHROTIC SYNDROME
  4. PREDNISONE. [Suspect]
     Active Substance: PREDNISONE

REACTIONS (10)
  - Vomiting [Unknown]
  - Weight increased [Unknown]
  - Hodgkin^s disease [Unknown]
  - Back pain [Unknown]
  - Full blood count decreased [Unknown]
  - Drug administered to patient of inappropriate age [Unknown]
  - Fatigue [Unknown]
  - Nausea [Unknown]
  - Blood uric acid increased [Unknown]
  - Off label use [Unknown]
